FAERS Safety Report 6679545 (Version 13)
Quarter: 2012Q4

REPORT INFORMATION
  Report Type: 
  Country: US (occurrence: US)
  Receive Date: 20080624
  Receipt Date: 20121228
  Transmission Date: 20130627
  Serious: Yes (Hospitalization, Congenital Anomaly, Other)
  Sender: FDA-Public Use
  Company Number: US-PFIZER INC-2008049868

PATIENT
  Sex: Female
  Weight: 3 kg

DRUGS (14)
  1. ZOLOFT [Suspect]
     Dosage: 50 mg, UNK
     Route: 064
     Dates: start: 20050901
  2. ZOFRAN [Concomitant]
     Dosage: UNK,
     Route: 064
  3. PRENATAL VITAMINS [Concomitant]
     Dosage: UNK,
     Route: 064
  4. BUTALBITAL [Concomitant]
     Indication: HEADACHE
     Dosage: UNK,
     Route: 064
  5. TYLENOL [Concomitant]
     Indication: HEADACHE
     Dosage: UNK,
     Route: 064
  6. TUMS [Concomitant]
     Dosage: UNK
     Route: 064
  7. CYCLOBENZAPRINE [Concomitant]
     Dosage: UNK
     Route: 064
  8. Q-TUSSIN [Concomitant]
     Dosage: UNK
     Route: 064
  9. MUCINEX [Concomitant]
     Dosage: UNK
     Route: 064
  10. CIPROFLOXACIN [Concomitant]
     Dosage: UNK
     Route: 064
  11. Z-PAK [Concomitant]
     Dosage: UNK
     Route: 064
  12. CEPHALEXIN [Concomitant]
     Dosage: UNK
     Route: 064
  13. HYDROCODONE/APAP [Concomitant]
     Dosage: UNK
     Route: 064
  14. CODEINE/APAP [Concomitant]
     Dosage: UNK
     Route: 064

REACTIONS (14)
  - Foetal exposure during pregnancy [Unknown]
  - Fallot^s tetralogy [Recovered/Resolved]
  - Congenital pulmonary valve atresia [Unknown]
  - Patent ductus arteriosus [Unknown]
  - Neonatal respiratory distress syndrome [Recovered/Resolved]
  - Pulmonary artery stenosis congenital [Unknown]
  - Atrial septal defect [Unknown]
  - Tricuspid valve incompetence [Unknown]
  - Mitral valve incompetence [Unknown]
  - Congenital pulmonary artery anomaly [Unknown]
  - Laevocardia [Unknown]
  - Vascular anomaly [Unknown]
  - Pulmonary artery stenosis [Unknown]
  - Pulmonary vascular disorder [Unknown]
